FAERS Safety Report 13234964 (Version 1)
Quarter: 2017Q1

REPORT INFORMATION
  Report Type: Spontaneous
  Country: RU (occurrence: RU)
  Receive Date: 20170215
  Receipt Date: 20170215
  Transmission Date: 20170428
  Serious: Yes (Other)
  Sender: FDA-Public Use
  Company Number: RU-PFIZER INC-2017062659

PATIENT
  Age: 43 Year
  Sex: Male

DRUGS (1)
  1. SUTENT [Suspect]
     Active Substance: SUNITINIB MALATE
     Indication: METASTATIC RENAL CELL CARCINOMA
     Dosage: 50 MG, CYCLIC (4 WEEKS INTAKE AND 2 WEEKS OFF)
     Route: 048
     Dates: start: 2013

REACTIONS (2)
  - Face oedema [Unknown]
  - Localised oedema [Unknown]

NARRATIVE: CASE EVENT DATE: 2017
